FAERS Safety Report 4712927-1 (Version None)
Quarter: 2005Q3

REPORT INFORMATION
  Report Type: 
  Country: None (occurrence: None)
  Receive Date: 20050712
  Receipt Date: 20050712
  Transmission Date: 20060218
  Serious: Yes (Hospitalization, Other)
  Sender: FDA-Public Use
  Company Number: None

PATIENT
  Sex: Male
  Weight: 85 kg

DRUGS (11)
  1. PACLITAXEL [Suspect]
     Indication: NON-SMALL CELL LUNG CANCER
     Dosage: 125 MG/M2 IV OVER 3 HOURS ON DAY 1 EVERY 21 DAYS X 2
     Route: 042
     Dates: start: 20050701
  2. CARBOPLATIN [Suspect]
     Dosage: AT AUC =6 IV OVDER 15-30 MIN ON DAY 1 EVERY 21 DAYS X 2
     Route: 042
  3. RADIATION [Suspect]
     Dosage: = 60 GY OVER 6 WEEKS BEGINNING BETWEEN DAYS 43-50
  4. ALOXI [Concomitant]
  5. BENADRYL [Concomitant]
  6. DECADRON [Concomitant]
  7. DIOVAN [Concomitant]
  8. FUROSAMIDE [Concomitant]
  9. METAPROLOL [Concomitant]
  10. TAGAMET [Concomitant]
  11. ZOCOR [Concomitant]

REACTIONS (4)
  - BLOOD PRESSURE IMMEASURABLE [None]
  - CHEST DISCOMFORT [None]
  - DIZZINESS [None]
  - LOSS OF CONSCIOUSNESS [None]
